FAERS Safety Report 5046381-X (Version None)
Quarter: 2006Q3

REPORT INFORMATION
  Report Type: 
  Country: None (occurrence: None)
  Receive Date: 20060706
  Receipt Date: 20060706
  Transmission Date: 20061208
  Serious: Yes (Life-Threatening, Hospitalization, Other)
  Sender: FDA-Public Use
  Company Number: None

PATIENT
  Sex: Female
  Weight: 82.5547 kg

DRUGS (1)
  1. PLAVIX [Suspect]
     Indication: RENAL ARTERY STENT PLACEMENT
     Dosage: 75 MG DAILY PO
     Route: 048
     Dates: start: 20060606, end: 20060628

REACTIONS (3)
  - CONTUSION [None]
  - EPISTAXIS [None]
  - THROMBOCYTOPENIA [None]
